FAERS Safety Report 6594064-7 (Version None)
Quarter: 2010Q1

REPORT INFORMATION
  Report Type: 
  Country: None (occurrence: None)
  Receive Date: 20100222
  Receipt Date: 20100217
  Transmission Date: 20100710
  Serious: Yes (Death)
  Sender: FDA-Public Use
  Company Number: US-GILEAD-2010-0027170

PATIENT
  Sex: Female

DRUGS (9)
  1. LETAIRIS [Suspect]
     Indication: PULMONARY HYPERTENSION
     Route: 048
     Dates: start: 20071001, end: 20100201
  2. REVATIO [Concomitant]
  3. WARFARIN SODIUM [Concomitant]
  4. FUROSEMIDE [Concomitant]
  5. ALBUTEROL [Concomitant]
  6. LEVOTHROID [Concomitant]
  7. LORAZEPAM [Concomitant]
  8. ZANTAC [Concomitant]
  9. KLOR-CON [Concomitant]

REACTIONS (1)
  - CARDIAC FAILURE CONGESTIVE [None]
